FAERS Safety Report 10886277 (Version 4)
Quarter: 2015Q4

REPORT INFORMATION
  Report Type: Report from Study
  Country: US (occurrence: US)
  Receive Date: 20150304
  Receipt Date: 20151015
  Transmission Date: 20160304
  Serious: Yes (Other)
  Sender: FDA-Public Use
  Company Number: US-SA-2014SA001251

PATIENT
  Age: 56 Year
  Sex: Female

DRUGS (5)
  1. AUBAGIO [Suspect]
     Active Substance: TERIFLUNOMIDE
     Indication: RELAPSING-REMITTING MULTIPLE SCLEROSIS
     Route: 048
     Dates: start: 20131220, end: 20140119
  2. VITAMIN D [Concomitant]
     Active Substance: CHOLECALCIFEROL
  3. AUBAGIO [Suspect]
     Active Substance: TERIFLUNOMIDE
     Indication: RELAPSING-REMITTING MULTIPLE SCLEROSIS
     Route: 048
     Dates: start: 20140120
  4. BUSPAR [Concomitant]
     Active Substance: BUSPIRONE HYDROCHLORIDE
  5. REBIF [Concomitant]
     Active Substance: INTERFERON BETA-1A

REACTIONS (10)
  - Oral surgery [Unknown]
  - Condition aggravated [Not Recovered/Not Resolved]
  - Urinary incontinence [Unknown]
  - Dysphagia [Unknown]
  - Gingival pain [Not Recovered/Not Resolved]
  - Hypertonic bladder [Unknown]
  - Trigeminal neuralgia [Unknown]
  - Weight decreased [Unknown]
  - Wrong technique in product usage process [Unknown]
  - Hypokinesia [Unknown]

NARRATIVE: CASE EVENT DATE: 2014
